FAERS Safety Report 10162738 (Version 2)
Quarter: 2014Q2

REPORT INFORMATION
  Report Type: Spontaneous
  Country: IT (occurrence: IT)
  Receive Date: 20140509
  Receipt Date: 20140627
  Transmission Date: 20141212
  Serious: Yes (Other)
  Sender: FDA-Public Use
  Company Number: IT-PFIZER INC-2014125929

PATIENT
  Age: 64 Year
  Sex: Male

DRUGS (2)
  1. SALAZOPYRIN EN [Suspect]
     Indication: PSORIATIC ARTHROPATHY
     Dosage: 1 DF, DAILY
     Route: 048
     Dates: start: 20140312, end: 20140320
  2. DOXAZOSIN [Concomitant]
     Dosage: 2 MG, UNK
     Route: 048

REACTIONS (5)
  - Hepatitis acute [Recovering/Resolving]
  - Asthenia [Recovering/Resolving]
  - Nausea [Recovering/Resolving]
  - Pyrexia [Recovering/Resolving]
  - Decreased appetite [Recovering/Resolving]
